FAERS Safety Report 8993540 (Version 1)
Quarter: 2013Q1

REPORT INFORMATION
  Report Type: Spontaneous
  Country: ES (occurrence: ES)
  Receive Date: 20130102
  Receipt Date: 20130102
  Transmission Date: 20140127
  Serious: Yes (Hospitalization)
  Sender: FDA-Public Use
  Company Number: ES-B.I. PHARMACEUTICALS,INC./RIDGEFIELD-2012-ES-00511ES

PATIENT
  Age: 82 Year
  Sex: Female

DRUGS (2)
  1. MICARDISPLUS [Suspect]
     Dosage: 80/12.5 MG
     Route: 048
     Dates: start: 2010
  2. ESPIRONOLACTONA [Suspect]
     Route: 048
     Dates: start: 201210

REACTIONS (3)
  - Medication error [Recovered/Resolved]
  - Hyperkalaemia [Unknown]
  - Drug interaction [Unknown]
